FAERS Safety Report 10240892 (Version 1)
Quarter: 2014Q2

REPORT INFORMATION
  Report Type: Report from Study
  Country: CL (occurrence: CL)
  Receive Date: 20140617
  Receipt Date: 20140617
  Transmission Date: 20141212
  Serious: Yes (Other)
  Sender: FDA-Public Use
  Company Number: CL-ROCHE-1418784

PATIENT
  Age: 45 Year
  Sex: Female

DRUGS (2)
  1. HERCEPTIN [Suspect]
     Indication: BREAST CANCER
     Route: 042
     Dates: start: 201305, end: 20140526
  2. XELODA [Suspect]
     Indication: BREAST CANCER
     Dosage: 14-DAY-CYCLE
     Route: 048
     Dates: start: 201405, end: 20140526

REACTIONS (3)
  - Drug-induced liver injury [Not Recovered/Not Resolved]
  - Metastasis [Not Recovered/Not Resolved]
  - Nodule [Not Recovered/Not Resolved]
